FAERS Safety Report 9234962 (Version 2)
Quarter: 2013Q2

REPORT INFORMATION
  Report Type: Report from Study
  Country: AU (occurrence: AU)
  Receive Date: 20130416
  Receipt Date: 20130501
  Transmission Date: 20140414
  Serious: Yes (Other)
  Sender: FDA-Public Use
  Company Number: AU-BRISTOL-MYERS SQUIBB COMPANY-18753392

PATIENT
  Age: 57 Year
  Sex: Male
  Weight: 70.3 kg

DRUGS (4)
  1. BELATACEPT [Suspect]
     Indication: RENAL TRANSPLANT
     Dosage: NO OF COURSES:9
     Route: 042
     Dates: start: 20061121, end: 20070213
  2. PREDNISONE [Suspect]
     Indication: RENAL TRANSPLANT
     Dosage: 23NV6-23,24NV-4DC6,24NV6,5DC6-14,15DC6,27DC6-8JN7,9JN7-29,9JN7,30JN7,30JN7-01MR7,2MR7-6
     Dates: start: 20061124
  3. TACROLIMUS [Suspect]
     Indication: RENAL TRANSPLANT
     Dosage: 28FB7-28FB7:7MG?1MR7-1MR7:14MG?2MR7-12MG?3MR7-10MG?10MR7-8MG?24MR7-9MG?25AR7-10MG
     Dates: start: 20070228
  4. CELLCEPT [Suspect]
     Indication: RENAL TRANSPLANT
     Dosage: 21NOV06-27NOV06?13FEB07-1500MG PO
     Dates: start: 20061121

REACTIONS (3)
  - Metastatic malignant melanoma [Unknown]
  - Malignant melanoma [Recovered/Resolved]
  - Squamous cell carcinoma of skin [Recovered/Resolved]
